FAERS Safety Report 8342130-8 (Version None)
Quarter: 2012Q2

REPORT INFORMATION
  Report Type: 
  Country: None (occurrence: None)
  Receive Date: 20120507
  Receipt Date: 20120425
  Transmission Date: 20120825
  Serious: Yes (Hospitalization)
  Sender: FDA-Public Use
  Company Number: AU-BAXTER-2012BAX001430

PATIENT
  Sex: Female

DRUGS (11)
  1. KIOVIG [Suspect]
     Route: 042
     Dates: start: 20120224, end: 20120224
  2. OMEPRAZOLE [Concomitant]
     Route: 048
  3. AMOXICILLIN [Concomitant]
     Indication: PROPHYLAXIS
     Route: 048
  4. MESTINON [Concomitant]
     Indication: MYASTHENIA GRAVIS
     Route: 048
  5. KIOVIG [Suspect]
     Route: 042
     Dates: start: 20120316, end: 20120316
  6. CALCIUM CARBONATE [Concomitant]
     Route: 065
  7. KIOVIG [Suspect]
     Indication: IDIOPATHIC THROMBOCYTOPENIC PURPURA
     Route: 042
     Dates: start: 20120127, end: 20120127
  8. VITAMIN D [Concomitant]
     Route: 065
  9. PREDNISOLONE [Concomitant]
     Indication: MYASTHENIA GRAVIS
     Route: 048
  10. AZATHIOPRINE [Concomitant]
     Indication: MYASTHENIA GRAVIS
     Route: 048
  11. PROPANTHELINE BROMIDE [Concomitant]
     Route: 065

REACTIONS (2)
  - DYSPNOEA [None]
  - FEELING OF BODY TEMPERATURE CHANGE [None]
